FAERS Safety Report 8202790-9 (Version None)
Quarter: 2012Q1

REPORT INFORMATION
  Report Type: 
  Country: None (occurrence: None)
  Receive Date: 20120312
  Receipt Date: 20120312
  Transmission Date: 20120608
  Serious: Yes (Death)
  Sender: FDA-Public Use
  Company Number: None

PATIENT
  Age: 69 Year
  Sex: Female
  Weight: 48.534 kg

DRUGS (2)
  1. AFINITOR [Suspect]
     Indication: NEOPLASM
     Dosage: ONE 10MG TABLET
     Dates: start: 20111001, end: 20111110
  2. AFINITOR [Concomitant]
     Dosage: ONE 10MG TABLET
     Dates: start: 20111001, end: 20111110

REACTIONS (3)
  - DYSPNOEA [None]
  - TOXICITY TO VARIOUS AGENTS [None]
  - LUNG DISORDER [None]
